FAERS Safety Report 21513922 (Version 4)
Quarter: 2023Q1

REPORT INFORMATION
  Report Type: Spontaneous
  Country: US (occurrence: US)
  Receive Date: 20221027
  Receipt Date: 20230306
  Transmission Date: 20230417
  Serious: No
  Sender: FDA-Public Use
  Company Number: US-BRISTOL-MYERS SQUIBB COMPANY-2022-127383

PATIENT
  Age: 69 Year
  Sex: Male

DRUGS (3)
  1. LENALIDOMIDE [Suspect]
     Active Substance: LENALIDOMIDE
     Indication: Plasma cell myeloma
     Route: 048
  2. LENALIDOMIDE [Suspect]
     Active Substance: LENALIDOMIDE
     Dosage: 1 CAPSULE DAILY FOR DAYS 1-14 OF A 21 DAY CYCLE
     Route: 048
     Dates: start: 20220718
  3. LENALIDOMIDE [Suspect]
     Active Substance: LENALIDOMIDE
     Dosage: FREQUENCY: D1-14 EVERY 21 DAYS
     Route: 048
     Dates: start: 20220718

REACTIONS (9)
  - Oedema [Recovering/Resolving]
  - Laboratory test abnormal [Recovering/Resolving]
  - Wound [Recovering/Resolving]
  - Blood iron decreased [Unknown]
  - Blood glucose increased [Unknown]
  - Off label use [Unknown]
  - Haemoglobin decreased [Recovering/Resolving]
  - Mean cell volume decreased [Recovering/Resolving]
  - Blood calcium decreased [Recovered/Resolved]
